FAERS Safety Report 14761260 (Version 2)
Quarter: 2018Q2

REPORT INFORMATION
  Report Type: Report from Study
  Country: IE (occurrence: IE)
  Receive Date: 20180415
  Receipt Date: 20180614
  Transmission Date: 20180711
  Serious: Yes (Life-Threatening, Hospitalization, Other)
  Sender: FDA-Public Use
  Company Number: IE-ALEXION PHARMACEUTICALS INC.-A201804151

PATIENT
  Sex: Male
  Weight: 7 kg

DRUGS (31)
  1. HYDROCORTISONE                     /00028602/ [Concomitant]
     Active Substance: HYDROCORTISONE
     Indication: PREMEDICATION
     Dosage: UNK
     Route: 042
     Dates: start: 20180411
  2. CHLORPHENAMINE [Concomitant]
     Active Substance: CHLORPHENIRAMINE MALEATE
     Dosage: 1.8 MG, UNK
     Route: 042
     Dates: start: 20180511
  3. CHLORPHENAMINE [Concomitant]
     Active Substance: CHLORPHENIRAMINE MALEATE
     Dosage: 1.4 MG, PRE-INFUSION
     Route: 042
     Dates: start: 20180315, end: 20180315
  4. LIPID [Concomitant]
     Indication: PRODUCT USED FOR UNKNOWN INDICATION
     Dosage: 0.5 G/KG, UNK
     Route: 065
     Dates: start: 20180317, end: 20180320
  5. SEBELIPASE ALFA [Suspect]
     Active Substance: SEBELIPASE ALFA
     Dosage: 3 MG/KG, EVERY 4 DAYS
     Route: 042
     Dates: start: 20180308
  6. CHLORPHENAMINE [Concomitant]
     Active Substance: CHLORPHENIRAMINE MALEATE
     Indication: ANTIALLERGIC THERAPY
     Dosage: 1.7 MG, UNK
     Route: 042
     Dates: start: 20180502
  7. OMALIZUMAB. [Concomitant]
     Active Substance: OMALIZUMAB
     Indication: PRODUCT USED FOR UNKNOWN INDICATION
     Dosage: 100 MG, UNK
     Route: 065
     Dates: start: 20180516
  8. AMLODIPINE [Concomitant]
     Active Substance: AMLODIPINE BESYLATE
     Indication: PRODUCT USED FOR UNKNOWN INDICATION
     Dosage: 0.9 MG, UNK
     Route: 048
     Dates: start: 20180429, end: 20180513
  9. OXYCODONE [Concomitant]
     Active Substance: OXYCODONE
     Indication: ANALGESIC THERAPY
     Dosage: 1.2 MG, UNK
     Route: 048
     Dates: start: 20180318, end: 20180318
  10. SODIUM CHLORIDE. [Concomitant]
     Active Substance: SODIUM CHLORIDE
     Indication: SUPPLEMENTATION THERAPY
     Dosage: 3 MMOL, Q6H
     Route: 048
     Dates: start: 20180313, end: 20180321
  11. LIPID [Concomitant]
     Dosage: 0.5 G/KG, UNK
     Route: 065
     Dates: start: 20180419
  12. PARENTERAL [Concomitant]
     Indication: PRODUCT USED FOR UNKNOWN INDICATION
     Dosage: 0.5 G/KG, UNK
     Route: 051
     Dates: start: 20180307, end: 20180507
  13. PARACETAMOL [Concomitant]
     Active Substance: ACETAMINOPHEN
     Dosage: 90 MG, Q6H
     Route: 048
     Dates: start: 20180314, end: 20180316
  14. LIPID [Concomitant]
     Dosage: 1.0 G/KG, UNK
     Route: 065
     Dates: start: 20180418
  15. CHLORPHENAMINE [Concomitant]
     Active Substance: CHLORPHENIRAMINE MALEATE
     Dosage: UNK UNK, Q12H
     Route: 065
     Dates: start: 20180517
  16. PARACETAMOL [Concomitant]
     Active Substance: ACETAMINOPHEN
     Indication: ANALGESIC THERAPY
     Dosage: 102 MG, UNK
     Route: 048
     Dates: start: 20180502
  17. PARACETAMOL [Concomitant]
     Active Substance: ACETAMINOPHEN
     Dosage: 105 MG, UNK
     Route: 048
     Dates: start: 20180511
  18. SEBELIPASE ALFA [Suspect]
     Active Substance: SEBELIPASE ALFA
     Indication: LYSOSOMAL ACID LIPASE DEFICIENCY
     Dosage: 3 MG, TWICE WEEKLY
     Route: 042
     Dates: start: 20180308
  19. CHLORPHENAMINE [Concomitant]
     Active Substance: CHLORPHENIRAMINE MALEATE
     Indication: PREMEDICATION
     Dosage: 1.6 MG, UNK
     Route: 042
     Dates: start: 20180411
  20. PARACETAMOL [Concomitant]
     Active Substance: ACETAMINOPHEN
     Indication: PREMEDICATION
     Dosage: 100 MG, UNK
     Route: 048
     Dates: start: 20180411
  21. PARACETAMOL [Concomitant]
     Active Substance: ACETAMINOPHEN
     Dosage: UNK UNK, PRN
     Route: 065
     Dates: start: 20180517
  22. METHYLPREDNISOLONE                 /00049605/ [Concomitant]
     Indication: PREMEDICATION
     Dosage: 8.75 MG, UNK
     Route: 042
     Dates: start: 20180511
  23. CAPTOPRIL. [Concomitant]
     Active Substance: CAPTOPRIL
     Indication: HYPERTENSION
     Dosage: 4 MG, Q8H
     Route: 048
     Dates: start: 20180317, end: 20180321
  24. OMEPRAZOLE. [Concomitant]
     Active Substance: OMEPRAZOLE
     Indication: PRODUCT USED FOR UNKNOWN INDICATION
     Dosage: 5 MG, QD
     Route: 048
     Dates: start: 20180313, end: 20180506
  25. ONDANSETRON [Concomitant]
     Active Substance: ONDANSETRON
     Indication: VOMITING
     Dosage: 1.6 MG, Q8H
     Route: 048
     Dates: start: 20180313, end: 20180320
  26. HEPSAL [Concomitant]
     Active Substance: HEPARIN SODIUM
     Indication: CATHETER MANAGEMENT
     Dosage: 1 ML, PRN
     Route: 042
     Dates: start: 20180305
  27. DIFFLAM [Concomitant]
     Active Substance: BENZYDAMINE HYDROCHLORIDE
     Indication: ORAL CANDIDIASIS
     Dosage: 1 SPRAY, QD
     Route: 048
     Dates: start: 20180318
  28. DEXAMETHASONE. [Concomitant]
     Active Substance: DEXAMETHASONE
     Indication: STEROID THERAPY
     Dosage: 1.7 MG, QD
     Route: 042
     Dates: start: 20180313, end: 20180320
  29. LIPID [Concomitant]
     Dosage: 0.8 G/KG, UNK
     Route: 065
     Dates: start: 20180413
  30. CLONIDINE. [Concomitant]
     Active Substance: CLONIDINE
     Indication: HYPERTENSION
     Dosage: 6 MCG, QD
     Route: 048
     Dates: start: 20130318, end: 20180318
  31. CYCLOSPORINE. [Concomitant]
     Active Substance: CYCLOSPORINE
     Indication: IMMUNOSUPPRESSANT DRUG THERAPY
     Dosage: UNK
     Route: 042
     Dates: start: 20180313, end: 20180316

REACTIONS (25)
  - Aspartate aminotransferase increased [Unknown]
  - Platelet count decreased [Unknown]
  - Stridor [Recovered/Resolved]
  - White blood cell count increased [Unknown]
  - Blood urea increased [Unknown]
  - Bilirubin conjugated increased [Unknown]
  - Alanine aminotransferase increased [Unknown]
  - Protein total decreased [Unknown]
  - Basophil count decreased [Unknown]
  - Angioedema [Recovered/Resolved]
  - Blood sodium decreased [Unknown]
  - Eosinophil count decreased [Unknown]
  - Blood albumin decreased [Unknown]
  - Haemoglobin decreased [Unknown]
  - Blood bilirubin increased [Unknown]
  - Blood creatinine decreased [Unknown]
  - Red blood cell count decreased [Unknown]
  - Anaphylactic shock [Recovered/Resolved]
  - Swollen tongue [Recovered/Resolved]
  - Rotavirus infection [Unknown]
  - Lip swelling [Recovered/Resolved]
  - Hypersensitivity [Recovered/Resolved]
  - Diarrhoea [Unknown]
  - Haematocrit decreased [Unknown]
  - Lymphocyte count decreased [Unknown]

NARRATIVE: CASE EVENT DATE: 20180320
